FAERS Safety Report 19300502 (Version 1)
Quarter: 2021Q2

REPORT INFORMATION
  Report Type: Other
  Country: US (occurrence: US)
  Receive Date: 20210525
  Receipt Date: 20210525
  Transmission Date: 20210717
  Serious: Yes (Hospitalization, Other)
  Sender: FDA-Public Use
  Company Number: US-ENCUBE-000075

PATIENT
  Age: 2 Month
  Sex: Female

DRUGS (1)
  1. TRIAMCINOLONE 0.1% CREAM [Suspect]
     Active Substance: TRIAMCINOLONE ACETONIDE
     Indication: DERMATITIS DIAPER
     Dosage: 0.1% CREAM TWICE DAILY
     Route: 061

REACTIONS (3)
  - Inappropriate schedule of product administration [Unknown]
  - Cushing^s syndrome [Recovered/Resolved]
  - Adrenal insufficiency [Recovered/Resolved]
